FAERS Safety Report 5793713-0 (Version None)
Quarter: 2008Q2

REPORT INFORMATION
  Report Type: 
  Country: None (occurrence: None)
  Receive Date: 20080627
  Receipt Date: 20080530
  Transmission Date: 20081010
  Serious: No
  Sender: FDA-Public Use
  Company Number: US-BAYER-200824583NA

PATIENT
  Age: 68 Year
  Sex: Female

DRUGS (2)
  1. ULTRAVIST 300 [Suspect]
     Indication: COMPUTERISED TOMOGRAM THORAX
     Dosage: TOTAL DAILY DOSE: 100 ML  UNIT DOSE: 100 ML
     Route: 042
     Dates: start: 20080425, end: 20080425
  2. SOLU-MEDROL [Concomitant]
     Indication: PREMEDICATION
     Dosage: AS USED: 32 MG
     Dates: start: 20080425, end: 20080425

REACTIONS (1)
  - URTICARIA [None]
